FAERS Safety Report 9188332 (Version 2)
Quarter: 2013Q1

REPORT INFORMATION
  Report Type: Spontaneous
  Country: US (occurrence: GB)
  Receive Date: 20130325
  Receipt Date: 20130325
  Transmission Date: 20140127
  Serious: Yes (Other)
  Sender: FDA-Public Use
  Company Number: GB-PFIZER INC-2008009200JJ

PATIENT
  Age: 78 Year
  Sex: Female
  Weight: 60 kg

DRUGS (4)
  1. IBUPROFEN [Suspect]
     Indication: OSTEOARTHRITIS
     Dosage: 200 MG, 3X/DAY
     Route: 048
     Dates: start: 20051008, end: 20051011
  2. DIHYDROCODEINE [Suspect]
     Indication: OSTEOARTHRITIS
     Route: 048
     Dates: start: 20051006
  3. DISODIUM [Suspect]
     Indication: OSTEOARTHRITIS
     Route: 042
     Dates: start: 20050927, end: 20050927
  4. DISODIUM [Suspect]
     Indication: OSTEOARTHRITIS
     Dosage: UNK
     Route: 042
     Dates: start: 20050927, end: 20050927

REACTIONS (1)
  - Erythema multiforme [Not Recovered/Not Resolved]
